FAERS Safety Report 9112868 (Version 3)
Quarter: 2013Q2

REPORT INFORMATION
  Report Type: Spontaneous
  Country: US (occurrence: US)
  Receive Date: 20130211
  Receipt Date: 20130506
  Transmission Date: 20140414
  Serious: No
  Sender: FDA-Public Use
  Company Number: US-PFIZER INC-2013053485

PATIENT
  Age: 67 Year
  Sex: Male
  Weight: 84.8 kg

DRUGS (9)
  1. SUTENT [Suspect]
     Indication: RENAL CANCER
     Dosage: 50 MG, CYCLIC
     Route: 048
     Dates: start: 201301, end: 20130422
  2. AMLODIPINE [Concomitant]
     Dosage: UNK
  3. TRICOR [Concomitant]
     Dosage: UNK
  4. VYTORIN [Concomitant]
     Dosage: UNK
  5. METFORMIN [Concomitant]
     Dosage: UNK
  6. GLYBURIDE [Concomitant]
     Dosage: UNK
  7. FISH OIL [Concomitant]
     Dosage: UNK
  8. ASPIRIN [Concomitant]
     Dosage: UNK
  9. MEGACE [Concomitant]
     Dosage: UNK

REACTIONS (7)
  - Oral pain [Unknown]
  - Hiccups [Unknown]
  - Weight decreased [Unknown]
  - Abdominal distension [Unknown]
  - Swollen tongue [Unknown]
  - Swelling face [Unknown]
  - Pharyngeal oedema [Unknown]
